FAERS Safety Report 19841486 (Version 1)
Quarter: 2021Q3

REPORT INFORMATION
  Report Type: Spontaneous
  Country: CA (occurrence: CA)
  Receive Date: 20210915
  Receipt Date: 20210915
  Transmission Date: 20211014
  Serious: Yes (Hospitalization)
  Sender: FDA-Public Use
  Company Number: CA-PFIZER INC-202101145077

PATIENT
  Age: 69 Year
  Sex: Female
  Weight: 69 kg

DRUGS (17)
  1. VENTOLIN [Concomitant]
     Active Substance: ALBUTEROL SULFATE
  2. LAX?A?DAY [Concomitant]
     Active Substance: POLYETHYLENE GLYCOL 3350
  3. AMLODIPINE [Concomitant]
     Active Substance: AMLODIPINE BESYLATE
  4. FUROSEMIDE. [Concomitant]
     Active Substance: FUROSEMIDE
  5. RESTORIL [Concomitant]
     Active Substance: TEMAZEPAM
  6. CARBOPLATIN. [Suspect]
     Active Substance: CARBOPLATIN
     Indication: SMALL CELL LUNG CANCER
     Dosage: 445 MG
     Route: 041
  7. CYCLOBENZAPRINE. [Concomitant]
     Active Substance: CYCLOBENZAPRINE
  8. PROCHLORAZINE [Concomitant]
  9. TRANDATE [Concomitant]
     Active Substance: LABETALOL HYDROCHLORIDE
  10. PREGABALIN. [Concomitant]
     Active Substance: PREGABALIN
  11. TYLENOL [Concomitant]
     Active Substance: ACETAMINOPHEN
  12. ASA [Concomitant]
     Active Substance: ASPIRIN
  13. DILAUDID [Concomitant]
     Active Substance: HYDROMORPHONE HYDROCHLORIDE
  14. ETOPOSIDE. [Suspect]
     Active Substance: ETOPOSIDE
     Dosage: 170 MG
     Route: 042
  15. EZETIMIBE. [Concomitant]
     Active Substance: EZETIMIBE
  16. INSPIOLTO RESPIMAT [Concomitant]
     Active Substance: OLODATEROL HYDROCHLORIDE\TIOTROPIUM BROMIDE MONOHYDRATE
  17. PANTOPRAZOLE [Concomitant]
     Active Substance: PANTOPRAZOLE

REACTIONS (2)
  - Febrile neutropenia [Recovered/Resolved]
  - Chills [Recovered/Resolved]
